FAERS Safety Report 7765261-X (Version None)
Quarter: 2011Q3

REPORT INFORMATION
  Report Type: 
  Country: None (occurrence: None)
  Receive Date: 20110921
  Receipt Date: 20110914
  Transmission Date: 20111222
  Serious: Yes (Hospitalization, Other)
  Sender: FDA-Public Use
  Company Number: FR-GLAXOSMITHKLINE-B0747262A

PATIENT
  Sex: Female

DRUGS (6)
  1. ATARAX [Suspect]
     Indication: PREMEDICATION
     Dosage: 50MG SINGLE DOSE
     Route: 042
     Dates: start: 20110812, end: 20110812
  2. ZANTAC [Suspect]
     Indication: PREMEDICATION
     Dosage: 50MG SINGLE DOSE
     Route: 042
     Dates: start: 20110812, end: 20110812
  3. ERBITUX [Suspect]
     Indication: NEOPLASM MALIGNANT
     Dosage: 600MG SINGLE DOSE
     Route: 042
     Dates: start: 20110812, end: 20110812
  4. CORTICOID [Concomitant]
  5. DEXAMETHASONE [Suspect]
     Indication: PREMEDICATION
     Dosage: 20MG SINGLE DOSE
     Route: 042
     Dates: start: 20110812, end: 20110812
  6. ANTI-DEPRESSIVE MEDICATION [Concomitant]

REACTIONS (4)
  - CYANOSIS [None]
  - DYSPNOEA [None]
  - TACHYCARDIA [None]
  - HYPERTENSION [None]
